FAERS Safety Report 6558769-6 (Version None)
Quarter: 2010Q1

REPORT INFORMATION
  Report Type: 
  Country: None (occurrence: None)
  Receive Date: 20100129
  Receipt Date: 20100119
  Transmission Date: 20100710
  Serious: Yes (Death, Hospitalization)
  Sender: FDA-Public Use
  Company Number: AU-BAXTER-2010BH000177

PATIENT
  Age: 86 Year
  Sex: Male

DRUGS (3)
  1. DIANEAL [Suspect]
     Indication: PERITONEAL DIALYSIS
     Route: 033
     Dates: end: 20091220
  2. DIANEAL [Suspect]
     Route: 033
     Dates: end: 20091220
  3. EXTRANEAL [Suspect]
     Indication: PERITONEAL DIALYSIS
     Route: 033
     Dates: end: 20091220

REACTIONS (3)
  - ARTHRITIS BACTERIAL [None]
  - MOBILITY DECREASED [None]
  - THERAPY CESSATION [None]
